FAERS Safety Report 18065942 (Version 7)
Quarter: 2021Q2

REPORT INFORMATION
  Report Type: Spontaneous
  Country: FR (occurrence: FR)
  Receive Date: 20200724
  Receipt Date: 20210507
  Transmission Date: 20210717
  Serious: Yes (Hospitalization, Other)
  Sender: FDA-Public Use
  Company Number: PHHY2018FR118201

PATIENT
  Age: 79 Year
  Sex: Female

DRUGS (3)
  1. FEMARA [Suspect]
     Active Substance: LETROZOLE
     Indication: BREAST CANCER RECURRENT
     Dosage: 2.5 MG, QD
     Route: 048
     Dates: start: 201809, end: 202103
  2. IBRANCE [Concomitant]
     Active Substance: PALBOCICLIB
     Indication: BREAST CANCER
     Dosage: 125 MG, QD
     Route: 048
     Dates: start: 20180816
  3. IBRANCE [Concomitant]
     Active Substance: PALBOCICLIB
     Dosage: 100 MG, QD
     Route: 048

REACTIONS (28)
  - Vision blurred [Not Recovered/Not Resolved]
  - Abdominal pain [Unknown]
  - Ocular discomfort [Not Recovered/Not Resolved]
  - Dyspnoea [Not Recovered/Not Resolved]
  - Dizziness [Unknown]
  - Stress [Unknown]
  - Osteoarthritis [Unknown]
  - Lacrimation increased [Unknown]
  - Headache [Unknown]
  - Dysphonia [Unknown]
  - White blood cell count decreased [Unknown]
  - Nausea [Unknown]
  - Face injury [Unknown]
  - Fall [Unknown]
  - Hair colour changes [Not Recovered/Not Resolved]
  - Decreased appetite [Unknown]
  - Bone pain [Unknown]
  - Cataract [Unknown]
  - Skin discolouration [Unknown]
  - Chest discomfort [Not Recovered/Not Resolved]
  - Visual acuity reduced [Unknown]
  - Tinnitus [Unknown]
  - Rhinorrhoea [Unknown]
  - Arthralgia [Not Recovered/Not Resolved]
  - Fatigue [Not Recovered/Not Resolved]
  - Cough [Unknown]
  - Alopecia [Not Recovered/Not Resolved]
  - Vomiting [Unknown]

NARRATIVE: CASE EVENT DATE: 201809
